FAERS Safety Report 18832716 (Version 9)
Quarter: 2025Q2

REPORT INFORMATION
  Report Type: Report from Study
  Country: US (occurrence: US)
  Receive Date: 20210203
  Receipt Date: 20250402
  Transmission Date: 20250716
  Serious: Yes (Other)
  Sender: TAKEDA
  Company Number: US-TAKEDA-2019TUS068366

PATIENT
  Sex: Female
  Weight: 69 kg

DRUGS (19)
  1. PONATINIB [Suspect]
     Active Substance: PONATINIB
     Indication: Acute lymphocytic leukaemia
     Dosage: 15 MILLIGRAM, QD
     Dates: start: 2017
  2. PONATINIB [Suspect]
     Active Substance: PONATINIB
     Indication: Chronic myeloid leukaemia
     Dosage: 30 MILLIGRAM, QD
  3. PONATINIB [Suspect]
     Active Substance: PONATINIB
     Dosage: 30 MILLIGRAM, QD
     Dates: start: 202001
  4. PONATINIB [Suspect]
     Active Substance: PONATINIB
  5. PONATINIB [Suspect]
     Active Substance: PONATINIB
  6. PONATINIB [Suspect]
     Active Substance: PONATINIB
     Dosage: 15 MILLIGRAM, QD
  7. VITAMIN D [Concomitant]
     Active Substance: VITAMIN D NOS
  8. IRON [Concomitant]
     Active Substance: IRON
  9. ASPIRIN [Concomitant]
     Active Substance: ASPIRIN
     Indication: Clot retraction
  10. METOPROLOL TARTRATE [Concomitant]
     Active Substance: METOPROLOL TARTRATE
     Indication: Blood pressure measurement
  11. LOSARTAN POTASSIUM [Concomitant]
     Active Substance: LOSARTAN POTASSIUM
     Indication: Blood pressure measurement
  12. OMEPRAZOLE [Concomitant]
     Active Substance: OMEPRAZOLE
     Indication: Gastrooesophageal reflux disease
  13. GABAPENTIN [Concomitant]
     Active Substance: GABAPENTIN
     Indication: Neuralgia
  14. GABAPENTIN [Concomitant]
     Active Substance: GABAPENTIN
     Dosage: 600 MILLIGRAM, TID
  15. HYDROCHLOROTHIAZIDE [Concomitant]
     Active Substance: HYDROCHLOROTHIAZIDE
  16. AMLODIPINE BESYLATE [Concomitant]
     Active Substance: AMLODIPINE BESYLATE
  17. FAMOTIDINE [Concomitant]
     Active Substance: FAMOTIDINE
  18. MELOXICAM [Concomitant]
     Active Substance: MELOXICAM
  19. HERBALS\TURMERIC [Concomitant]
     Active Substance: HERBALS\TURMERIC

REACTIONS (18)
  - Blindness unilateral [Unknown]
  - Cataract [Unknown]
  - Hair growth abnormal [Unknown]
  - Pigmentation disorder [Unknown]
  - Product dose omission issue [Unknown]
  - Tooth disorder [Unknown]
  - Eye injury [Unknown]
  - Limb injury [Unknown]
  - COVID-19 [Unknown]
  - Full blood count increased [Unknown]
  - Dry skin [Not Recovered/Not Resolved]
  - Visual impairment [Recovered/Resolved]
  - Skin exfoliation [Unknown]
  - Alopecia [Unknown]
  - Gastrooesophageal reflux disease [Unknown]
  - Visual impairment [Unknown]
  - Vision blurred [Recovered/Resolved]
  - Hypertension [Unknown]

NARRATIVE: CASE EVENT DATE: 20200101
